FAERS Safety Report 6759436-6 (Version None)
Quarter: 2010Q2

REPORT INFORMATION
  Report Type: 
  Country: None (occurrence: None)
  Receive Date: 20100603
  Receipt Date: 20100222
  Transmission Date: 20101027
  Serious: Yes (Hospitalization, Other)
  Sender: FDA-Public Use
  Company Number: AUR-APL-2010-00656

PATIENT
  Age: 75 Year
  Sex: Male

DRUGS (3)
  1. SULFAMETHOXAZOLE AND TRIMETHOPRIM [Suspect]
     Indication: WOUND INFECTION
     Dosage: 5 DOSES
  2. LEVOFLOXACIN [Suspect]
     Indication: WOUND INFECTION
     Dosage: 3 DOSES
  3. PROPRANOLOL [Suspect]
     Dosage: SEVERAL YEARS

REACTIONS (11)
  - ABDOMINAL PAIN [None]
  - ANHEDONIA [None]
  - BLOOD POTASSIUM INCREASED [None]
  - DEHYDRATION [None]
  - DEPRESSION [None]
  - DISTURBANCE IN ATTENTION [None]
  - NAUSEA [None]
  - PSYCHOMOTOR RETARDATION [None]
  - RENAL FAILURE ACUTE [None]
  - SUICIDAL IDEATION [None]
  - VOMITING [None]
